FAERS Safety Report 15104634 (Version 1)
Quarter: 2018Q3

REPORT INFORMATION
  Report Type: Spontaneous
  Country: CZ (occurrence: CZ)
  Receive Date: 20180703
  Receipt Date: 20180703
  Transmission Date: 20181010
  Serious: Yes (Other)
  Sender: FDA-Public Use
  Company Number: PHHY2018CZ000671

PATIENT
  Age: 44 Year

DRUGS (9)
  1. CISPLATIN. [Concomitant]
     Active Substance: CISPLATIN
     Indication: HER-2 POSITIVE BREAST CANCER
     Dosage: 20 MG/M2, QW
     Route: 065
     Dates: start: 20140401, end: 20140521
  2. TRASTUZUMAB. [Concomitant]
     Active Substance: TRASTUZUMAB
     Dosage: 2 MG/KG, QW
     Route: 065
     Dates: start: 20140401
  3. PACLITAXEL. [Suspect]
     Active Substance: PACLITAXEL
     Indication: HER-2 POSITIVE BREAST CANCER
     Dosage: 90 MG/M2, QW (FOUR WEEKLY DOSES)
     Route: 065
     Dates: start: 20140303
  4. 5?FLUOROURACIL [Concomitant]
     Active Substance: FLUOROURACIL
     Indication: HER-2 POSITIVE BREAST CANCER
     Dosage: 200 MG/M2, QD (CONTINUOUS INFUSION)
     Route: 041
     Dates: start: 20140401, end: 20140401
  5. TRASTUZUMAB. [Concomitant]
     Active Substance: TRASTUZUMAB
     Indication: HER-2 POSITIVE BREAST CANCER
     Dosage: 4 MG/KG, QW (FOUR WEEKLY DOSES; (4 MG/KG LOADING DOSE, THEN 2 MG/KG))
     Route: 065
     Dates: start: 20140303
  6. TRASTUZUMAB. [Concomitant]
     Active Substance: TRASTUZUMAB
     Dosage: 600 MG, Q3W (CONTINUED FOR A TOTAL DURATION OF 1 YEAR)
     Route: 058
     Dates: start: 20140801
  7. CARBOPLATIN. [Suspect]
     Active Substance: CARBOPLATIN
     Indication: RECTAL ADENOCARCINOMA
     Dosage: UNK UNK, QW (FOUR WEEKLY DOSES)
     Route: 065
     Dates: start: 20140303
  8. CARBOPLATIN. [Suspect]
     Active Substance: CARBOPLATIN
     Indication: HER-2 POSITIVE BREAST CANCER
  9. PACLITAXEL. [Suspect]
     Active Substance: PACLITAXEL
     Indication: RECTAL ADENOCARCINOMA

REACTIONS (1)
  - Lymphopenia [Unknown]
